FAERS Safety Report 7762692-9 (Version None)
Quarter: 2011Q3

REPORT INFORMATION
  Report Type: 
  Country: None (occurrence: None)
  Receive Date: 20110920
  Receipt Date: 20110909
  Transmission Date: 20111222
  Serious: Yes (Other)
  Sender: FDA-Public Use
  Company Number: US-JNJFOC-20110712187

PATIENT
  Age: 11 Year
  Sex: Female
  Weight: 51.71 kg

DRUGS (1)
  1. LISTERINE TOTALCARE ANTICAVITY [Suspect]
     Indication: DENTAL DISORDER PROPHYLAXIS
     Dosage: ONCE
     Route: 048
     Dates: start: 20110726, end: 20110726

REACTIONS (8)
  - RASH [None]
  - APPLICATION SITE VESICLES [None]
  - PAIN [None]
  - RASH PRURITIC [None]
  - APHAGIA [None]
  - ORAL DISCOMFORT [None]
  - DYSPNOEA [None]
  - APPLICATION SITE BURN [None]
